FAERS Safety Report 4632893-7 (Version None)
Quarter: 2005Q2

REPORT INFORMATION
  Report Type: 
  Country: None (occurrence: None)
  Receive Date: 20050325
  Receipt Date: 20041208
  Transmission Date: 20051028
  Serious: No
  Sender: FDA-Public Use
  Company Number: USA040258775

PATIENT
  Age: 84 Year
  Sex: Female

DRUGS (4)
  1. FORTEO [Suspect]
     Indication: OSTEOPOROSIS
     Dosage: 20 UG/1 DAY
     Dates: start: 20040401
  2. EVISTA [Suspect]
     Indication: OSTEOPOROSIS
     Dosage: 60 MG/1 DAY
  3. FOSAMAX [Concomitant]
  4. CALCIUM GLUCONATE [Concomitant]

REACTIONS (4)
  - BONE DENSITY DECREASED [None]
  - CONTUSION [None]
  - FALL [None]
  - FEELING ABNORMAL [None]
